FAERS Safety Report 24193728 (Version 2)
Quarter: 2024Q4

REPORT INFORMATION
  Report Type: Spontaneous
  Country: US (occurrence: US)
  Receive Date: 20240809
  Receipt Date: 20241022
  Transmission Date: 20250114
  Serious: Yes (Hospitalization, Disabling, Other)
  Sender: AMGEN
  Company Number: US-AMGEN-USASP2024154828

PATIENT
  Age: 53 Year
  Sex: Female
  Weight: 83.447 kg

DRUGS (40)
  1. TEPEZZA [Suspect]
     Active Substance: TEPROTUMUMAB-TRBW
     Indication: Endocrine ophthalmopathy
     Dosage: 500 MILLIGRAM
     Route: 042
     Dates: start: 202306
  2. TEPEZZA [Suspect]
     Active Substance: TEPROTUMUMAB-TRBW
     Indication: Graves^ disease
     Dosage: 500 MILLIGRAM (FOR THE FULL EIGHT DOSES)
     Route: 042
     Dates: end: 202311
  3. PREDNISONE [Suspect]
     Active Substance: PREDNISONE
     Indication: Product used for unknown indication
     Dosage: 20 MG TABLET TAKE 2 TABLETS ORAL DAILY FOR 3 DAYS AND THEN 1 TABLET ORAL DAILY FOR 4 DAYS
     Route: 048
  4. VITAMIN B12 [Concomitant]
     Active Substance: CYANOCOBALAMIN
     Dosage: 1000 MUG/ML, QMO
     Route: 030
  5. DOXEPIN HYDROCHLORIDE [Concomitant]
     Active Substance: DOXEPIN HYDROCHLORIDE
     Dosage: 25 MG CAPSULE TAKE 1-2 CAPSULES BY MOUTH AT NIGHT TIME
     Route: 048
  6. ESTRADIOL [Concomitant]
     Active Substance: ESTRADIOL
     Dosage: 0.01 % (0.1 MG/GRAM) VAGINAL CREAM INSERT ONE APPLICATORFUL NIGHTLY FOR 1-2 WEEKS AND THEN 1-3 TIMES
  7. ESTRADIOL [Concomitant]
     Active Substance: ESTRADIOL
     Dosage: 0.05 MG/24 HR WEEKLY TRANSDERMAL PATCH APPLY 1 PATCH ONCE WEEKLY
  8. FLUCONAZOLE [Concomitant]
     Active Substance: FLUCONAZOLE
     Dosage: 150 MILLIGRAM, TAKE 1 TAB BY MOUTH NOW THEN REPEAT IN 3-4 DAYS
     Route: 048
  9. HYDROCODONE BITARTRATE AND ACETAMINOPHEN [Concomitant]
     Active Substance: ACETAMINOPHEN\HYDROCODONE BITARTRATE
     Indication: Pain
     Dosage: 325 MILLIGRAM, Q6H (HYDROCODONE 7.5 MG-ACETAMINOPHEN 325 MG TABLET TAKE 1 TABLET EVERY 6 HOURS AS NE
  10. IMVEXXY [Concomitant]
     Active Substance: ESTRADIOL
     Dosage: 10 MICROGRAM, STARTER PACK VAGINAL INSERT, DOSE PACK
     Route: 067
  11. KLOR-CON M10 [Concomitant]
     Active Substance: POTASSIUM CHLORIDE
     Dosage: 30 MILLIEQUIVALENT, TAKE 2 TABLETS (20MEQ) BY MOUTH EVERY MORNING AND TAKE 1 TABLET EVERY EVENING
     Route: 048
  12. LEVOCETIRIZINE [Concomitant]
     Active Substance: LEVOCETIRIZINE
     Dosage: 5 MILLIGRAM, QD
     Route: 048
  13. LEVOTHYROXINE [Concomitant]
     Active Substance: LEVOTHYROXINE
     Dosage: 112 MICROGRAM, QD IN THE MORNING
     Route: 048
  14. LEVOTHYROXINE [Concomitant]
     Active Substance: LEVOTHYROXINE
     Dosage: 100 MICROGRAM, QD
     Route: 048
  15. LEVOTHYROXINE [Concomitant]
     Active Substance: LEVOTHYROXINE
     Dosage: 88 MICROGRAM, QD FOR 90 DAYS
     Route: 048
  16. MELOXICAM [Concomitant]
     Active Substance: MELOXICAM
     Dosage: 15 MILLIGRAM, QD TAKE WITH FOOD
     Route: 048
  17. MONTELUKAST [Concomitant]
     Active Substance: MONTELUKAST
     Dosage: 10 MILLIGRAM, QD EVERY EVENING
     Route: 048
  18. RESTASIS [Concomitant]
     Active Substance: CYCLOSPORINE
     Dosage: INSTILL 1 DROP INTO AFFECTED EYE, Q12H
     Route: 047
  19. SPIRONOLACTONE AND HYDROCHLOROTHIAZIDE [Concomitant]
     Active Substance: HYDROCHLOROTHIAZIDE\SPIRONOLACTONE
     Dosage: 25 MILLIGRAM, QD
     Route: 048
  20. TRAMADOL [Concomitant]
     Active Substance: TRAMADOL
     Indication: Pain
     Dosage: 50 MILLIGRAM EVERY 4 TO 6 HOURS AS NEEDED
  21. TRAZODONE [Concomitant]
     Active Substance: TRAZODONE HYDROCHLORIDE
     Dosage: 100 MG TABLET TAKE 1-2 TABLET, QHS AS NEEDED
     Route: 048
  22. TRAZODONE [Concomitant]
     Active Substance: TRAZODONE HYDROCHLORIDE
     Dosage: 300 MILLIGRAM, QHS AS NEEDED
     Route: 048
  23. VITAMIN D2 [Concomitant]
     Active Substance: ERGOCALCIFEROL
     Dosage: 1250 MICROGRAM (50,000 UNIT), QWK
     Route: 048
  24. XHANCE [Concomitant]
     Active Substance: FLUTICASONE PROPIONATE
     Dosage: 93 MICROGRAMACTUATION BREATH ACTIVATED AEROSOL
  25. XIIDRA [Concomitant]
     Active Substance: LIFITEGRAST
     Dosage: IN A DROPPERETTE
  26. INFLUENZA VIRUS VACCINE [Concomitant]
     Active Substance: INFLUENZA VIRUS VACCINE
     Dosage: 0.5 MILLILITER INFLUENZA INJECTABLE QUADRIVALENT PRESERVATIVE FREE
     Route: 030
     Dates: start: 20211029
  27. INFLUENZA VIRUS VACCINE [Concomitant]
     Active Substance: INFLUENZA VIRUS VACCINE
     Dosage: 0.5 MILLILITER INFLUENZA INJECTABLE QUADRIVALENT PRESERVATIVE FREE
     Route: 030
     Dates: start: 20221031
  28. INFLUENZA VIRUS VACCINE [Concomitant]
     Active Substance: INFLUENZA VIRUS VACCINE
     Dosage: INFLUENZA SEASONAL INJECTABLE PRESERVATIVE FREE
     Route: 030
     Dates: start: 20231001
  29. AUGMENTIN [Concomitant]
     Active Substance: AMOXICILLIN\CLAVULANATE POTASSIUM
     Dosage: 125 MILLIGRAM, Q12H
     Route: 048
  30. ATENOLOL [Concomitant]
     Active Substance: ATENOLOL
     Dosage: 50 MILLIGRAM, QD
     Route: 048
  31. ATENOLOL [Concomitant]
     Active Substance: ATENOLOL
     Dosage: 25 MILLIGRAM, QD
     Route: 048
  32. IRON [Concomitant]
     Active Substance: IRON
  33. ALBUTEROL SULFATE [Concomitant]
     Active Substance: ALBUTEROL SULFATE
     Indication: Dyspnoea
     Dosage: 90 MICROGRAM /ACTUATION AEROSOL INHALER INHALE 1-2 PUFFS EVERY 4-6 HOURS AS NEEDED
  34. ALBUTEROL SULFATE [Concomitant]
     Active Substance: ALBUTEROL SULFATE
     Indication: Wheezing
  35. AMOXICILLIN AND CLAVULANATE POTASSIUM [Concomitant]
     Active Substance: AMOXICILLIN\CLAVULANATE POTASSIUM
     Dosage: AMOXICILLIN 500 MG-POTASSIUM CLAVULANATE 125 MG TABLET TAKE 1 TABLET , Q12H
     Route: 048
  36. IBUPROFEN [Concomitant]
     Active Substance: IBUPROFEN
     Dosage: 800 MILLIGRAM, Q8H AS NEEDED
     Route: 048
  37. PAXLOVID [Concomitant]
     Active Substance: NIRMATRELVIR\RITONAVIR
     Dosage: 300 MILLIGRAM (150 MG X 2)-100 MG TABLETS IN A DOSE PACK USE AS DIRECTED
  38. PROMETHAZINE DM [Concomitant]
     Active Substance: DEXTROMETHORPHAN HYDROBROMIDE\PROMETHAZINE HYDROCHLORIDE
     Indication: Cough
     Dosage: .25 MG-15 MG/5 ML ORAL SYRUP TAKE 5-10 ML, QID AS NEEDED
     Route: 048
  39. TIZANIDINE [Concomitant]
     Active Substance: TIZANIDINE
     Indication: Muscle spasms
     Dosage: 4 MG TABLET TAKE 1-2 TABLETS, Q8H AS NEEDED
  40. TIZANIDINE [Concomitant]
     Active Substance: TIZANIDINE
     Indication: Pain

REACTIONS (25)
  - Deafness permanent [Not Recovered/Not Resolved]
  - Endocrine ophthalmopathy [Unknown]
  - Graves^ disease [Unknown]
  - Bradycardia [Recovering/Resolving]
  - Dyspnoea [Recovering/Resolving]
  - Tinnitus [Not Recovered/Not Resolved]
  - Pain [Unknown]
  - Emotional distress [Unknown]
  - Product use complaint [Unknown]
  - Anxiety [Unknown]
  - Discomfort [Unknown]
  - Gait disturbance [Unknown]
  - Acute sinusitis [Unknown]
  - Serum ferritin increased [Unknown]
  - Weight decreased [Unknown]
  - Gastrooesophageal reflux disease [Unknown]
  - Blood thyroid stimulating hormone decreased [Unknown]
  - Carbon dioxide increased [Unknown]
  - White blood cell count increased [Unknown]
  - Treatment failure [Unknown]
  - Gastrointestinal pain [Unknown]
  - Upper respiratory tract infection [Recovering/Resolving]
  - Blood urea increased [Unknown]
  - Sleep disorder [Unknown]
  - Ill-defined disorder [Unknown]

NARRATIVE: CASE EVENT DATE: 20230101
